FAERS Safety Report 20225055 (Version 1)
Quarter: 2021Q4

REPORT INFORMATION
  Report Type: Spontaneous
  Country: CN (occurrence: CN)
  Receive Date: 20211223
  Receipt Date: 20211223
  Transmission Date: 20220303
  Serious: Yes (Other)
  Sender: FDA-Public Use
  Company Number: CN-BAXTER-2021BAX041729

PATIENT
  Age: 38 Year
  Sex: Female
  Weight: 49 kg

DRUGS (4)
  1. CYCLOPHOSPHAMIDE [Suspect]
     Active Substance: CYCLOPHOSPHAMIDE
     Indication: Invasive ductal breast carcinoma
     Dosage: 0.9% SODIUM CHLORIDE 50ML + CYCLOPHOSPHAMIDE 0.8G
     Route: 041
     Dates: start: 20211210, end: 20211210
  2. DEXTROSE [Suspect]
     Active Substance: DEXTROSE
     Indication: Medication dilution
     Dosage: 5% GLUCOSE 500ML + DOXORUBICIN HYDROCHLORIDE LIPOSOME 48 MG
     Route: 041
     Dates: start: 20211210, end: 20211210
  3. SODIUM CHLORIDE [Suspect]
     Active Substance: SODIUM CHLORIDE
     Indication: Medication dilution
     Dosage: 0.9% SODIUM CHLORIDE 50ML + CYCLOPHOSPHAMIDE 0.8G
     Route: 041
     Dates: start: 20211210, end: 20211210
  4. DOXORUBICIN HYDROCHLORIDE [Suspect]
     Active Substance: DOXORUBICIN HYDROCHLORIDE
     Indication: Invasive ductal breast carcinoma
     Dosage: 5% GLUCOSE 500ML + DOXORUBICIN HYDROCHLORIDE LIPOSOME 48 MG
     Route: 041
     Dates: start: 20211210, end: 20211210

REACTIONS (2)
  - Nausea [Recovering/Resolving]
  - Decreased appetite [Recovering/Resolving]

NARRATIVE: CASE EVENT DATE: 20211211
